FAERS Safety Report 21994417 (Version 1)
Quarter: 2023Q1

REPORT INFORMATION
  Report Type: Spontaneous
  Country: US (occurrence: US)
  Receive Date: 20230215
  Receipt Date: 20230215
  Transmission Date: 20230418
  Serious: No
  Sender: FDA-Public Use
  Company Number: US-GLAUKOS-35962

PATIENT

DRUGS (2)
  1. DEVICE [Suspect]
     Active Substance: DEVICE
     Indication: Keratoconus
     Route: 047
     Dates: start: 20220826, end: 20220826
  2. PHOTREXA VISCOUS [Suspect]
     Active Substance: RIBOFLAVIN 5^-PHOSPHATE SODIUM
     Indication: Keratoconus
     Route: 047
     Dates: start: 20220826, end: 20220826

REACTIONS (2)
  - Device effect increased [Unknown]
  - Corneal oedema [Recovered/Resolved]

NARRATIVE: CASE EVENT DATE: 20220827
